FAERS Safety Report 23925834 (Version 1)
Quarter: 2024Q2

REPORT INFORMATION
  Report Type: Spontaneous
  Country: CN (occurrence: CN)
  Receive Date: 20240531
  Receipt Date: 20240531
  Transmission Date: 20240715
  Serious: Yes (Other)
  Sender: FDA-Public Use
  Company Number: CN-FreseniusKabi-FK202408434

PATIENT
  Age: 61 Year
  Sex: Male
  Weight: 60 kg

DRUGS (6)
  1. KABIVEN [Suspect]
     Active Substance: ALANINE\ARGININE\ASPARTIC ACID\CALCIUM CHLORIDE\DEXTROSE MONOHYDRATE\GLUTAMIC ACID\GLYCINE\HISTIDINE
     Indication: Nutritional supplementation
     Dosage: FORM OF ADMIN: INJECTION?ROUTE OF ADMIN: INTRAVENOUS DRIP (IM)
     Dates: start: 20240517, end: 20240517
  2. POTASSIUM CHLORIDE [Suspect]
     Active Substance: POTASSIUM CHLORIDE
     Indication: Product used for unknown indication
     Dosage: DOSAGE FORM: INJECTION?ROA: INTRAVENOUS DRIP (IM)
     Dates: start: 20240517, end: 20240517
  3. VITAMINS NOS [Suspect]
     Active Substance: VITAMINS
     Indication: Product used for unknown indication
     Dosage: DOSAGE FORM: POWDER FOR INJECTION?ROA: INTRAVENOUS DRIP (IM)
     Dates: start: 20240517, end: 20240517
  4. VITAMINS [Suspect]
     Active Substance: VITAMINS
     Indication: Nutritional supplementation
     Dosage: DOSAGE FORM: POWDER FOR INJECTION?ROA: INTRAVENOUS DRIP (IM)
     Dates: start: 20240517, end: 20240517
  5. SODIUM CHLORIDE [Suspect]
     Active Substance: SODIUM CHLORIDE
     Indication: Product used for unknown indication
     Dosage: DOSAGE FORM: INJECTION?ROA: INTRAVENOUS DRIP (IM)
     Dates: start: 20240517, end: 20240517
  6. INSULIN NOS [Suspect]
     Active Substance: INSULIN NOS
     Indication: Nutritional supplementation
     Dosage: DOSAGE FORM: INJECTION?ROA: INTRAVENOUS DRIP (IM)
     Dates: start: 20240517, end: 20240517

REACTIONS (1)
  - Anaphylactic shock [Recovering/Resolving]

NARRATIVE: CASE EVENT DATE: 20240517
